FAERS Safety Report 21663376 (Version 1)
Quarter: 2022Q4

REPORT INFORMATION
  Report Type: Spontaneous
  Country: US (occurrence: None)
  Receive Date: 20221129
  Receipt Date: 20221129
  Transmission Date: 20230113
  Serious: Yes (unspecified)
  Sender: FDA-Public Use
  Company Number: None

PATIENT
  Age: 35 Year
  Sex: Male

DRUGS (3)
  1. SERMORELIN ACETATE [Suspect]
     Active Substance: SERMORELIN ACETATE
     Indication: Blood growth hormone abnormal
     Dosage: FREQUENCY : TWICE A DAY;?
     Route: 058
     Dates: start: 20220504, end: 20221123
  2. SERMORELIN ACETATE [Suspect]
     Active Substance: SERMORELIN ACETATE
     Indication: Hormone replacement therapy
  3. Bacteriostatic Water 1.5% [Concomitant]
     Dates: start: 20220504

REACTIONS (2)
  - Injection site rash [None]
  - Injection site urticaria [None]

NARRATIVE: CASE EVENT DATE: 20221123
